FAERS Safety Report 4704507-9 (Version None)
Quarter: 2005Q2

REPORT INFORMATION
  Report Type: 
  Country: None (occurrence: None)
  Receive Date: 20050629
  Receipt Date: 20050616
  Transmission Date: 20051028
  Serious: Yes (Death)
  Sender: FDA-Public Use
  Company Number: 2005090092

PATIENT
  Age: 80 Year
  Sex: Male

DRUGS (1)
  1. XALATAN [Suspect]
     Indication: GLAUCOMA
     Dosage: SINGLE INTERVAL: EVERYDAY), TOPICAL
     Route: 061
     Dates: start: 20001020, end: 20050501

REACTIONS (1)
  - RESPIRATORY FAILURE [None]
